FAERS Safety Report 5648115-4 (Version None)
Quarter: 2008Q1

REPORT INFORMATION
  Report Type: 
  Country: None (occurrence: None)
  Receive Date: 20080229
  Receipt Date: 20080219
  Transmission Date: 20080703
  Serious: Yes (Other)
  Sender: FDA-Public Use
  Company Number: 2007-04015

PATIENT
  Age: 76 Year
  Sex: Female
  Weight: 70.8 kg

DRUGS (4)
  1. VELCADE [Suspect]
     Indication: MULTIPLE MYELOMA
     Dosage: 2.30 MG
     Dates: start: 20070605, end: 20070810
  2. VELCADE [Suspect]
     Indication: MULTIPLE MYELOMA
     Dosage: 2.30 MG
     Dates: start: 20071023, end: 20071108
  3. EPREX [Concomitant]
  4. PROCHLORPERAZINE [Concomitant]

REACTIONS (1)
  - RENAL FAILURE [None]
